FAERS Safety Report 21572051 (Version 1)
Quarter: 2022Q4

REPORT INFORMATION
  Report Type: Spontaneous
  Country: HK (occurrence: HK)
  Receive Date: 20221109
  Receipt Date: 20221109
  Transmission Date: 20230113
  Serious: Yes (Other)
  Sender: FDA-Public Use
  Company Number: HK-MYLANLABS-2022M1123593

PATIENT

DRUGS (3)
  1. TEMOZOLOMIDE [Suspect]
     Active Substance: TEMOZOLOMIDE
     Indication: Sarcoma
     Dosage: 100 MILLIGRAM/SQ. METER, CYCLE, AIT REGIMEN; FOR 5 DAYS, GIVEN AT A 3 WEEKLY INTERVAL
     Route: 048
  2. APATINIB [Suspect]
     Active Substance: APATINIB
     Indication: Sarcoma
     Dosage: UNK, CYCLE, AIT REGIMEN; DOSE BASED ON BODY SURFACE AREA, GIVEN AT A 3 WEEKLY INTERVAL
     Route: 048
  3. IRINOTECAN [Suspect]
     Active Substance: IRINOTECAN
     Indication: Sarcoma
     Dosage: 50 MILLIGRAM/SQ. METER, CYCLE, AIT REGIMEN; FOR 5 DAYS, GIVEN AT A 3 WEEKLY INTERVAL
     Route: 042

REACTIONS (2)
  - Pneumatosis intestinalis [Unknown]
  - Gastrointestinal haemorrhage [Unknown]
